FAERS Safety Report 6585611-X (Version None)
Quarter: 2010Q1

REPORT INFORMATION
  Report Type: 
  Country: None (occurrence: None)
  Receive Date: 20100217
  Receipt Date: 20100202
  Transmission Date: 20100710
  Serious: Yes (Other)
  Sender: FDA-Public Use
  Company Number: US-BAYER-200924436NA

PATIENT
  Age: 72 Year
  Sex: Female
  Weight: 83 kg

DRUGS (28)
  1. MAGNEVIST [Suspect]
     Indication: NUCLEAR MAGNETIC RESONANCE IMAGING
     Dates: start: 20030616, end: 20030616
  2. MAGNEVIST [Suspect]
     Dates: start: 20071106, end: 20071106
  3. OMNISCAN [Suspect]
     Indication: NUCLEAR MAGNETIC RESONANCE IMAGING
  4. OPTIMARK [Suspect]
     Indication: NUCLEAR MAGNETIC RESONANCE IMAGING
  5. MULTIHANCE [Suspect]
     Indication: NUCLEAR MAGNETIC RESONANCE IMAGING
  6. PROHANCE [Suspect]
     Indication: NUCLEAR MAGNETIC RESONANCE IMAGING
  7. UNKNOWN CONTRAST [Suspect]
     Indication: NUCLEAR MAGNETIC RESONANCE IMAGING
     Dates: start: 19980101, end: 19980101
  8. UNKNOWN CONTRAST [Suspect]
     Dates: start: 20060401, end: 20060401
  9. UNKNOWN CONTRAST [Suspect]
     Dates: start: 20071219, end: 20071219
  10. UNKNOWN CONTRAST [Suspect]
     Dates: start: 20080101, end: 20080101
  11. ANALGESICS [Concomitant]
     Indication: PAIN
  12. RENAGEL [Concomitant]
  13. PAXIL [Concomitant]
  14. CLONAZEPAM [Concomitant]
  15. COUMADIN [Concomitant]
  16. SYNTHROID [Concomitant]
  17. MEDOTRINE [Concomitant]
  18. PREVACHOL [Concomitant]
  19. NEPHROCAPS [Concomitant]
  20. ALEVE (CAPLET) [Concomitant]
  21. NEURONTIN [Concomitant]
  22. SINEMET [Concomitant]
  23. CINACALCET HYDROCHLORIDE [Concomitant]
  24. MIDODRINE HYDROCHLORIDE [Concomitant]
  25. SEVELAMER [Concomitant]
  26. EPOGEN [Concomitant]
     Dates: start: 19990101
  27. IRON [Concomitant]
     Dates: start: 19990101
  28. SULFASALAZINE [Concomitant]

REACTIONS (33)
  - AREFLEXIA [None]
  - ARTHRALGIA [None]
  - BALANCE DISORDER [None]
  - DEFORMITY [None]
  - ECZEMA [None]
  - ERYTHEMA [None]
  - EXERCISE TOLERANCE DECREASED [None]
  - GAIT DISTURBANCE [None]
  - HIP FRACTURE [None]
  - HYPERKERATOSIS [None]
  - HYPOAESTHESIA [None]
  - INDURATION [None]
  - MOBILITY DECREASED [None]
  - MUSCULAR WEAKNESS [None]
  - NEPHROGENIC SYSTEMIC FIBROSIS [None]
  - NODULE ON EXTREMITY [None]
  - OEDEMA [None]
  - PAIN [None]
  - PAIN IN EXTREMITY [None]
  - PRURITUS [None]
  - PURPURA [None]
  - RASH [None]
  - RASH MACULAR [None]
  - RASH PAPULAR [None]
  - SCAR [None]
  - SCLERAL DISORDER [None]
  - SKIN BURNING SENSATION [None]
  - SKIN DISCOLOURATION [None]
  - SKIN FIBROSIS [None]
  - SKIN HYPERTROPHY [None]
  - SKIN PLAQUE [None]
  - SPONDYLITIS [None]
  - VASODILATATION [None]
